FAERS Safety Report 8915511 (Version 2)
Quarter: 2013Q1

REPORT INFORMATION
  Report Type: Report from Study
  Country: US (occurrence: US)
  Receive Date: 20121119
  Receipt Date: 20130225
  Transmission Date: 20140127
  Serious: No
  Sender: FDA-Public Use
  Company Number: US-VERTEX PHARMACEUTICAL INC.-2012-024596

PATIENT
  Sex: Female

DRUGS (7)
  1. VX-950 (TELAPREVIR) [Suspect]
     Indication: HEPATITIS C
     Dosage: 750 MG, TID
     Route: 048
  2. PEGASYS [Suspect]
     Indication: HEPATITIS C
  3. RIBAVIRIN [Suspect]
     Indication: HEPATITIS C
     Dosage: 200 MG, UNK
  4. VICODIN [Concomitant]
     Dosage: 5-300 MG
  5. CALCIUM +D [Concomitant]
  6. OMEGA 3 [Concomitant]
     Dosage: 1000 MG, UNK
  7. ESTROVEN [Concomitant]

REACTIONS (3)
  - Skin papilloma [Unknown]
  - Decreased appetite [Unknown]
  - Vomiting [Unknown]
